FAERS Safety Report 21064154 (Version 2)
Quarter: 2022Q3

REPORT INFORMATION
  Report Type: Spontaneous
  Country: US (occurrence: US)
  Receive Date: 20220711
  Receipt Date: 20220719
  Transmission Date: 20221026
  Serious: No
  Sender: FDA-Public Use
  Company Number: US-LUPIN PHARMACEUTICALS INC.-2022-09267

PATIENT
  Sex: Male

DRUGS (2)
  1. ALBUTEROL SULFATE [Suspect]
     Active Substance: ALBUTEROL SULFATE
     Indication: Product used for unknown indication
     Dosage: UNK UNK, PRN
     Dates: start: 202206
  2. ALBUTEROL SULFATE [Suspect]
     Active Substance: ALBUTEROL SULFATE
     Dosage: UNK UNK, PRN
     Dates: start: 202206

REACTIONS (3)
  - Wrong technique in product usage process [Unknown]
  - Device defective [Unknown]
  - No adverse event [Unknown]
